FAERS Safety Report 7090359-1 (Version None)
Quarter: 2010Q4

REPORT INFORMATION
  Report Type: 
  Country: None (occurrence: None)
  Receive Date: 20101104
  Receipt Date: 20101104
  Transmission Date: 20110411
  Serious: No
  Sender: FDA-Public Use
  Company Number: None

PATIENT
  Age: 76 Year
  Sex: Female

DRUGS (8)
  1. REVLIMID [Suspect]
     Indication: MYELODYSPLASTIC SYNDROME
     Dosage: 5MG DAILY ORALLY
     Route: 048
     Dates: start: 20100401, end: 20101001
  2. OMEPRAZOLE [Concomitant]
  3. GEMFIBROZIL [Concomitant]
  4. LOVASTATIN [Concomitant]
  5. FLONASE [Concomitant]
  6. NORTRIPTYLINE HCL [Concomitant]
  7. LEVOTHROID [Concomitant]
  8. ATENOLOL [Concomitant]

REACTIONS (1)
  - THROMBOCYTOPENIA [None]
